FAERS Safety Report 9396398 (Version 3)
Quarter: 2013Q3

REPORT INFORMATION
  Report Type: Spontaneous
  Country: US (occurrence: US)
  Receive Date: 20130711
  Receipt Date: 20130829
  Transmission Date: 20140515
  Serious: Yes (Other)
  Sender: FDA-Public Use
  Company Number: US-BIOGENIDEC-2013BI061819

PATIENT
  Age: 53 Year
  Sex: Female
  Weight: 72 kg

DRUGS (1)
  1. AVONEX [Suspect]
     Indication: MULTIPLE SCLEROSIS
     Route: 030
     Dates: start: 20130323

REACTIONS (5)
  - Granular cell tumour [Recovered/Resolved]
  - Weight increased [Not Recovered/Not Resolved]
  - Cold sweat [Recovered/Resolved]
  - Pain [Unknown]
  - Injection site pain [Recovered/Resolved]
